FAERS Safety Report 9153859 (Version 2)
Quarter: 2015Q2

REPORT INFORMATION
  Report Type: Spontaneous
  Country: US (occurrence: US)
  Receive Date: 20130311
  Receipt Date: 20150601
  Transmission Date: 20150821
  Serious: Yes (Hospitalization)
  Sender: FDA-Public Use
  Company Number: US-BAYER-2013-028410

PATIENT
  Age: 41 Year
  Sex: Female
  Weight: 63.49 kg

DRUGS (4)
  1. OCELLA [Suspect]
     Active Substance: DROSPIRENONE\ETHINYL ESTRADIOL
     Dosage: UNK
     Dates: start: 20070118, end: 200705
  2. GIANVI [Suspect]
     Active Substance: DROSPIRENONE\ETHINYL ESTRADIOL
     Dosage: UNK
     Dates: start: 20070118, end: 200705
  3. YAZ [Suspect]
     Active Substance: DROSPIRENONE\ETHINYL ESTRADIOL
     Dosage: UNK
     Dates: start: 20070118, end: 200705
  4. YASMIN [Suspect]
     Active Substance: DROSPIRENONE\ETHINYL ESTRADIOL
     Dosage: UNK
     Dates: start: 20070118, end: 200705

REACTIONS (5)
  - Injury [None]
  - Deep vein thrombosis [None]
  - Pain [None]
  - Pulmonary embolism [None]
  - Emotional distress [None]

NARRATIVE: CASE EVENT DATE: 20070611
